FAERS Safety Report 25512316 (Version 1)
Quarter: 2025Q3

REPORT INFORMATION
  Report Type: Spontaneous
  Country: US (occurrence: US)
  Receive Date: 20250703
  Receipt Date: 20250703
  Transmission Date: 20251020
  Serious: No
  Sender: RADIUS PHARM
  Company Number: US-RADIUS HEALTH INC.-2024US007974

PATIENT
  Sex: Female

DRUGS (2)
  1. TYMLOS [Suspect]
     Active Substance: ABALOPARATIDE
     Indication: Osteoporosis
     Route: 058
  2. TYMLOS [Suspect]
     Active Substance: ABALOPARATIDE
     Route: 058

REACTIONS (9)
  - Intentional dose omission [Recovered/Resolved]
  - Vomiting [Unknown]
  - Depressed mood [Unknown]
  - Arthralgia [Unknown]
  - Insomnia [Unknown]
  - Dyspepsia [Unknown]
  - Asthenia [Unknown]
  - Pain in extremity [Unknown]
  - Intentional product misuse [Unknown]
